FAERS Safety Report 5203379-6 (Version None)
Quarter: 2007Q1

REPORT INFORMATION
  Report Type: 
  Country: None (occurrence: None)
  Receive Date: 20070105
  Receipt Date: 20061221
  Transmission Date: 20070707
  Serious: Yes (Death)
  Sender: FDA-Public Use
  Company Number: 2006002374

PATIENT
  Age: 61 Year
  Sex: Male

DRUGS (10)
  1. ERLOTINIB (TABLET) [Suspect]
     Indication: PANCREATIC CARCINOMA METASTATIC
     Dosage: 100 MG (QD), ORAL
     Route: 048
     Dates: start: 20060829, end: 20061030
  2. BEVACIZUMAB (INJECTION FOR INFUSION) [Suspect]
     Indication: PANCREATIC CARCINOMA METASTATIC
     Dosage: (EVERY 2 WEEKS), INTRAVENOUS
     Route: 042
     Dates: start: 20060829, end: 20061030
  3. OMIC (TAMSULOSIN HYDROCHLORIDE) [Concomitant]
  4. LACTULOSE [Concomitant]
  5. TRAZOLAN (TRAZODONE HYDRCOHLORIDE) [Concomitant]
  6. TRADONAL (TRAMADOL HYDROCHLORIDE) [Concomitant]
  7. VOLTAREN [Concomitant]
  8. ZANTAC [Concomitant]
  9. LAXOBERON (SODIUM PICOSULFATE) [Concomitant]
  10. GEMCITABINE [Suspect]
     Indication: PANCREATIC CARCINOMA METASTATIC
     Dosage: 2000 MG/M^2 (Q WEEK), INTRAVENOUS
     Route: 042
     Dates: start: 20060829, end: 20061030

REACTIONS (8)
  - ASCITES INFECTION [None]
  - CANDIDIASIS [None]
  - COMPUTERISED TOMOGRAM ABNORMAL [None]
  - ESCHERICHIA INFECTION [None]
  - GASTROINTESTINAL PERFORATION [None]
  - IATROGENIC INJURY [None]
  - SEPSIS [None]
  - STAPHYLOCOCCAL INFECTION [None]
